FAERS Safety Report 21176336 (Version 3)
Quarter: 2022Q3

REPORT INFORMATION
  Report Type: Spontaneous
  Country: BR (occurrence: BR)
  Receive Date: 20220805
  Receipt Date: 20220826
  Transmission Date: 20221026
  Serious: Yes (Other)
  Sender: FDA-Public Use
  Company Number: BR-002147023-NVSC2022BR134894

PATIENT
  Age: 39 Year
  Sex: Female
  Weight: 79.6 kg

DRUGS (4)
  1. XOLAIR [Suspect]
     Active Substance: OMALIZUMAB
     Indication: Chronic spontaneous urticaria
     Dosage: UNK
     Route: 065
  2. XOLAIR [Suspect]
     Active Substance: OMALIZUMAB
     Route: 065
     Dates: start: 20220204
  3. XOLAIR [Suspect]
     Active Substance: OMALIZUMAB
     Dosage: ON 27 JUN
     Route: 065
  4. ALPRAZOLAM [Concomitant]
     Active Substance: ALPRAZOLAM
     Indication: Anxiety
     Dosage: 1 DOSAGE FORM, QD
     Dates: start: 201911

REACTIONS (11)
  - Insomnia [Recovered/Resolved]
  - Gait disturbance [Recovered/Resolved]
  - Muscle rupture [Recovered/Resolved]
  - Oedema peripheral [Recovered/Resolved]
  - Breast swelling [Recovered/Resolved]
  - Mouth swelling [Recovered/Resolved]
  - Chikungunya virus infection [Recovered/Resolved]
  - Malaise [Recovered/Resolved]
  - Muscle swelling [Recovered/Resolved]
  - Peripheral swelling [Unknown]
  - Oedema [Unknown]

NARRATIVE: CASE EVENT DATE: 20220527
